FAERS Safety Report 26062256 (Version 1)
Quarter: 2025Q4

REPORT INFORMATION
  Report Type: Report from Study
  Country: MX (occurrence: MX)
  Receive Date: 20251119
  Receipt Date: 20251119
  Transmission Date: 20260117
  Serious: Yes (Death, Other)
  Sender: BIOVITRUM
  Company Number: MX-AstraZeneca-CH-00993827A

PATIENT
  Age: 6 Month
  Sex: Male
  Weight: 2.305 kg

DRUGS (2)
  1. PALIVIZUMAB [Suspect]
     Active Substance: PALIVIZUMAB
     Indication: Antiviral prophylaxis
     Dosage: 0.33 MILLILITER, QMONTH?FREQUENCY: 1 MONTH
     Route: 030
     Dates: start: 20250319, end: 20250319
  2. PALIVIZUMAB [Suspect]
     Active Substance: PALIVIZUMAB
     Dosage: 0.30 MILLILITER, QMONTH?FREQUENCY: 1 MONTH
     Route: 030
     Dates: start: 20250122, end: 20250319

REACTIONS (1)
  - Death [Fatal]

NARRATIVE: CASE EVENT DATE: 20250416
